FAERS Safety Report 5391281-9 (Version None)
Quarter: 2007Q3

REPORT INFORMATION
  Report Type: 
  Country: None (occurrence: None)
  Receive Date: 20070719
  Receipt Date: 20070710
  Transmission Date: 20080115
  Serious: Yes (Other)
  Sender: FDA-Public Use
  Company Number: CA-JNJFOC-20070702552

PATIENT
  Age: 47 Year
  Sex: Female

DRUGS (7)
  1. REMICADE [Suspect]
     Route: 042
  2. REMICADE [Suspect]
     Indication: RHEUMATOID ARTHRITIS
     Route: 042
  3. ARAVA [Suspect]
     Indication: DRUG USE FOR UNKNOWN INDICATION
  4. PREMARIN [Concomitant]
     Dosage: 10 DAYS PER CYCLE.
  5. PREDNISONE [Concomitant]
  6. TYLENOL [Concomitant]
  7. ADVIL LIQUI-GELS [Concomitant]

REACTIONS (4)
  - HYPOAESTHESIA ORAL [None]
  - PARAESTHESIA [None]
  - URINARY INCONTINENCE [None]
  - URINE OUTPUT INCREASED [None]
